FAERS Safety Report 4577929-7 (Version None)
Quarter: 2005Q1

REPORT INFORMATION
  Report Type: 
  Country: None (occurrence: None)
  Receive Date: 20050209
  Receipt Date: 20050203
  Transmission Date: 20050727
  Serious: No
  Sender: FDA-Public Use
  Company Number: 29980

PATIENT
  Age: 63 Year
  Sex: Female

DRUGS (1)
  1. BSS PLUS SOLUTION IRRIGATION SOLUTION (BATCH #S:  1215F, 5072F) [Suspect]
     Indication: SURGERY
     Dosage: IO
     Dates: start: 20041125, end: 20041125

REACTIONS (8)
  - CATARACT OPERATION COMPLICATION [None]
  - CORNEAL OEDEMA [None]
  - DESCEMET'S MEMBRANE DISORDER [None]
  - FLAT ANTERIOR CHAMBER OF EYE [None]
  - HYPOPYON [None]
  - HYPOTONY OF EYE [None]
  - MEDICAL DEVICE COMPLICATION [None]
  - MEDICATION ERROR [None]
